FAERS Safety Report 25393615 (Version 1)
Quarter: 2025Q2

REPORT INFORMATION
  Report Type: Spontaneous
  Country: US (occurrence: US)
  Receive Date: 20250604
  Receipt Date: 20250604
  Transmission Date: 20250717
  Serious: Yes (Hospitalization, Other)
  Sender: Norvium Bioscience
  Company Number: US-Norvium Bioscience LLC-080201

PATIENT
  Age: 23 Year
  Sex: Female

DRUGS (17)
  1. VALPROATE SODIUM [Suspect]
     Active Substance: VALPROATE SODIUM
     Indication: Agitation
  2. PREGABALIN [Suspect]
     Active Substance: PREGABALIN
     Indication: Agitation
  3. LITHIUM CARBONATE [Suspect]
     Active Substance: LITHIUM CARBONATE
     Indication: Agitation
  4. OXYCODONE [Suspect]
     Active Substance: OXYCODONE
     Indication: Agitation
  5. INH [Suspect]
     Active Substance: ISONIAZID
     Indication: Pulmonary tuberculosis
  6. OLANZAPINE [Concomitant]
     Active Substance: OLANZAPINE
     Indication: Agitation
  7. GUANFACINE [Concomitant]
     Active Substance: GUANFACINE
     Indication: Agitation
  8. LORAZEPAM [Concomitant]
     Active Substance: LORAZEPAM
     Indication: Agitation
  9. RIFAMPIN [Concomitant]
     Active Substance: RIFAMPIN
     Indication: Pulmonary tuberculosis
  10. PYRAZINAMIDE [Concomitant]
     Active Substance: PYRAZINAMIDE
     Indication: Pulmonary tuberculosis
  11. ETHAMBUTOL [Concomitant]
     Active Substance: ETHAMBUTOL HYDROCHLORIDE
     Indication: Pulmonary tuberculosis
  12. DEXMEDETOMIDINE [Concomitant]
     Active Substance: DEXMEDETOMIDINE
     Indication: Agitation
  13. PROPOFOL [Concomitant]
     Active Substance: PROPOFOL
     Indication: Agitation
  14. HYDROMORPHONE [Concomitant]
     Active Substance: HYDROMORPHONE
     Indication: Agitation
  15. HALOPERIDOL [Concomitant]
     Active Substance: HALOPERIDOL
     Indication: Agitation
     Route: 042
  16. PREGABALIN [Suspect]
     Active Substance: PREGABALIN
     Indication: Pain
  17. LITHIUM CARBONATE [Suspect]
     Active Substance: LITHIUM CARBONATE
     Indication: Agitation

REACTIONS (1)
  - Serotonin syndrome [Not Recovered/Not Resolved]
